FAERS Safety Report 11939590 (Version 1)
Quarter: 2016Q1

REPORT INFORMATION
  Report Type: Spontaneous
  Country: JP (occurrence: JP)
  Receive Date: 20160122
  Receipt Date: 20160122
  Transmission Date: 20160526
  Serious: Yes (Death)
  Sender: FDA-Public Use
  Company Number: JP-MALLINCKRODT-T201501250

PATIENT
  Age: 60 Year
  Sex: Female
  Weight: 75 kg

DRUGS (27)
  1. LAC-B [Concomitant]
     Active Substance: BIFIDOBACTERIUM SPP.
     Dosage: 3 G
     Route: 048
     Dates: end: 20150105
  2. DUROTEP [Concomitant]
     Active Substance: FENTANYL
     Indication: ANALGESIC THERAPY
     Dosage: 16.8 MG
     Route: 062
     Dates: end: 20150213
  3. METHADONE [Suspect]
     Active Substance: METHADONE HYDROCHLORIDE
     Dosage: 10 MG (20 MG DAILY DOSE)
     Route: 048
     Dates: start: 20141009, end: 20141029
  4. LASIX [Concomitant]
     Active Substance: FUROSEMIDE
     Dosage: 20 MG
     Route: 048
     Dates: end: 20150120
  5. BISOLVON [Concomitant]
     Active Substance: BROMHEXINE HYDROCHLORIDE
     Dosage: 12 MG
     Route: 048
     Dates: end: 20150120
  6. REBAMIPIDE [Concomitant]
     Active Substance: REBAMIPIDE
     Dosage: 300 MG
     Route: 048
     Dates: end: 20150120
  7. MAGMITT [Concomitant]
     Active Substance: MAGNESIUM OXIDE
     Dosage: 990 MG
     Route: 048
     Dates: end: 20150120
  8. FAMOTIDINE. [Concomitant]
     Active Substance: FAMOTIDINE
     Dosage: 20 MG
     Route: 048
     Dates: end: 20150120
  9. ZYPREXA [Concomitant]
     Active Substance: OLANZAPINE
     Dosage: 5 MG
     Route: 048
     Dates: start: 20150113, end: 20150120
  10. METHADONE [Suspect]
     Active Substance: METHADONE HYDROCHLORIDE
     Indication: CANCER PAIN
     Dosage: 5 MG (15 MG DAILY DOSE)
     Route: 048
     Dates: start: 20140821, end: 20141008
  11. SENNOSIDE [Concomitant]
     Active Substance: SENNOSIDES
     Dosage: 12 MG
     Route: 048
     Dates: end: 20150120
  12. LYRICA [Concomitant]
     Active Substance: PREGABALIN
     Dosage: 100 MG
     Route: 048
     Dates: start: 20150113, end: 20150120
  13. LOXOPROFEN SODIUM [Concomitant]
     Active Substance: LOXOPROFEN SODIUM
     Dosage: 180 MG
     Route: 048
     Dates: end: 20150120
  14. FENTOS [Concomitant]
     Active Substance: FENTANYL
     Dosage: 32 MG
     Route: 062
     Dates: end: 20141026
  15. LAXODATE [Concomitant]
     Dosage: 10 GTT
     Route: 048
     Dates: start: 20150113, end: 20150120
  16. TOFRANIL [Concomitant]
     Active Substance: IMIPRAMINE HYDROCHLORIDE
     Dosage: 20 MG
     Route: 048
     Dates: end: 20150105
  17. REFLEX [Concomitant]
     Active Substance: MIRTAZAPINE
     Dosage: 15 MG
     Route: 048
     Dates: start: 20150113, end: 20150120
  18. METHADONE [Suspect]
     Active Substance: METHADONE HYDROCHLORIDE
     Dosage: 25 MG DAILY DOSE
     Route: 048
     Dates: start: 20141030, end: 20150120
  19. METHADONE [Suspect]
     Active Substance: METHADONE HYDROCHLORIDE
     Dosage: 10 MG, (20 MG DAILY DOSE)
     Route: 048
     Dates: start: 20150121, end: 20150211
  20. OXINORM [Concomitant]
     Active Substance: OXYCODONE HYDROCHLORIDE
     Dosage: 40 MG, PRN
     Route: 048
     Dates: start: 20140820
  21. LYRICA [Concomitant]
     Active Substance: PREGABALIN
     Indication: ANALGESIC THERAPY
     Dosage: 150 MG
     Route: 048
     Dates: end: 20150105
  22. FAMOSTAGINE [Concomitant]
     Active Substance: FAMOTIDINE
     Dosage: 20 MG
     Route: 048
     Dates: end: 20150105
  23. SENNOSIDE [Concomitant]
     Active Substance: SENNOSIDES
     Dosage: 24 MG
     Route: 048
     Dates: end: 20150105
  24. FERROUS SULFATE [Concomitant]
     Active Substance: FERROUS SULFATE\FERROUS SULFATE, DRIED
     Dosage: 105 MG
     Route: 048
     Dates: end: 20150120
  25. OXYCONTIN [Concomitant]
     Active Substance: OXYCODONE HYDROCHLORIDE
     Dosage: 160 MG
     Route: 048
     Dates: end: 20141029
  26. DEXTROMETHORPHAN [Concomitant]
     Active Substance: DEXTROMETHORPHAN
     Dosage: 15 MG
     Route: 048
     Dates: end: 20150120
  27. GLYCERIN. [Concomitant]
     Active Substance: GLYCERIN
     Dosage: 60 ML
     Route: 054
     Dates: start: 20150113, end: 20150210

REACTIONS (2)
  - Somnolence [Recovering/Resolving]
  - Breast cancer [Fatal]

NARRATIVE: CASE EVENT DATE: 20140823
